FAERS Safety Report 10512286 (Version 2)
Quarter: 2014Q4

REPORT INFORMATION
  Report Type: Spontaneous
  Country: IN (occurrence: IN)
  Receive Date: 20141010
  Receipt Date: 20141024
  Transmission Date: 20150528
  Serious: Yes (Other)
  Sender: FDA-Public Use
  Company Number: IN-GE HEALTHCARE MEDICAL DIAGNOSTICS-OMPQ-PR-1410S-1256

PATIENT
  Age: 30 Year
  Sex: Female
  Weight: 75.9 kg

DRUGS (7)
  1. RABIMED [Concomitant]
  2. OMNIPAQUE [Suspect]
     Active Substance: IOHEXOL
     Indication: INVESTIGATION
     Route: 013
     Dates: start: 20140930, end: 20140930
  3. CIPLAR LA20 [Concomitant]
  4. ZERODOL [Concomitant]
  5. OMNIPAQUE [Suspect]
     Active Substance: IOHEXOL
     Indication: DIAGNOSTIC PROCEDURE
  6. TRAMAZAC [Concomitant]
  7. ABOCAL [Concomitant]

REACTIONS (4)
  - Back pain [Recovering/Resolving]
  - Chills [Recovering/Resolving]
  - Headache [Recovering/Resolving]
  - Nausea [Recovering/Resolving]

NARRATIVE: CASE EVENT DATE: 20140930
